FAERS Safety Report 8085357-5 (Version None)
Quarter: 2012Q1

REPORT INFORMATION
  Report Type: 
  Country: None (occurrence: None)
  Receive Date: 20120128
  Receipt Date: 20110525
  Transmission Date: 20120608
  Serious: Yes (Other)
  Sender: FDA-Public Use
  Company Number: US-ABBOTT-10P-163-0652628-00

PATIENT
  Sex: Female

DRUGS (5)
  1. HUMIRA [Suspect]
     Indication: RHEUMATOID ARTHRITIS
     Route: 058
     Dates: start: 20030601
  2. CENTRUM [Concomitant]
     Indication: VITAMIN SUPPLEMENTATION
     Route: 048
  3. METHOTREXATE [Concomitant]
     Indication: PRODUCT USED FOR UNKNOWN INDICATION
  4. HUMIRA [Suspect]
     Dates: start: 20070201, end: 20110501
  5. VITAMIN D [Concomitant]
     Indication: PRODUCT USED FOR UNKNOWN INDICATION

REACTIONS (17)
  - VISION BLURRED [None]
  - FATIGUE [None]
  - NEURALGIA [None]
  - PARAESTHESIA [None]
  - PAIN IN EXTREMITY [None]
  - BREAST CYST [None]
  - DRUG INEFFECTIVE [None]
  - NERVE COMPRESSION [None]
  - PHOTOPHOBIA [None]
  - SKIN CANCER [None]
  - EYE IRRITATION [None]
  - DRY SKIN [None]
  - DIZZINESS [None]
  - DRY EYE [None]
  - MAJOR DEPRESSION [None]
  - INJECTION SITE WARMTH [None]
  - NECK PAIN [None]
